FAERS Safety Report 14304787 (Version 1)
Quarter: 2017Q4

REPORT INFORMATION
  Report Type: Spontaneous
  Country: JP (occurrence: JP)
  Receive Date: 20171219
  Receipt Date: 20171219
  Transmission Date: 20180321
  Serious: Yes (Hospitalization)
  Sender: FDA-Public Use
  Company Number: JP-OTSUKA-03100-JPN-06-0537

PATIENT
  Age: 47 Year
  Sex: Female
  Weight: 50 kg

DRUGS (25)
  1. SERENACE [Concomitant]
     Active Substance: HALOPERIDOL
     Dosage: 4 MG, TID
     Route: 048
     Dates: start: 20060904, end: 20060905
  2. LODOPIN [Concomitant]
     Active Substance: ZOTEPINE
     Route: 048
     Dates: start: 200606, end: 200608
  3. HALOPERIDOL. [Concomitant]
     Active Substance: HALOPERIDOL
     Indication: HALLUCINATION
     Dosage: 12 MG, UNK
     Route: 048
     Dates: start: 200603
  4. NOVOLIN R [Concomitant]
     Active Substance: INSULIN HUMAN
     Dosage: 6 IU, QD
     Route: 058
     Dates: start: 2003, end: 20060905
  5. NOVOLIN R [Concomitant]
     Active Substance: INSULIN HUMAN
     Dosage: 6 IU, QD
     Route: 058
     Dates: start: 2003, end: 20060905
  6. NOVOLIN R [Concomitant]
     Active Substance: INSULIN HUMAN
     Dosage: 12 IU, QD
     Route: 058
     Dates: start: 20060906
  7. NOVOLIN R [Concomitant]
     Active Substance: INSULIN HUMAN
     Dosage: 8 IU, QD
     Route: 058
     Dates: start: 20060906
  8. DEPAKENE [Concomitant]
     Active Substance: VALPROIC ACID
     Dosage: 200 MG, TID
     Route: 048
     Dates: start: 20060904, end: 20060905
  9. BIPERIDEN HCL [Concomitant]
     Active Substance: BIPERIDEN HYDROCHLORIDE
     Indication: PARKINSONISM
     Dosage: 2 MG, UNK
     Route: 048
     Dates: start: 200603
  10. LODOPIN [Concomitant]
     Active Substance: ZOTEPINE
     Route: 048
     Dates: start: 200609
  11. DEPAKENE [Concomitant]
     Active Substance: VALPROIC ACID
     Route: 048
     Dates: start: 20060906
  12. FLUNITRAZEPAM [Concomitant]
     Active Substance: FLUNITRAZEPAM
     Indication: INSOMNIA
     Dosage: 1 MG, UNK
     Route: 048
     Dates: start: 200603
  13. NOVOLIN R [Concomitant]
     Active Substance: INSULIN HUMAN
     Dosage: 8 IU, QD
     Route: 058
     Dates: start: 20060906
  14. AKINETON [Concomitant]
     Active Substance: BIPERIDEN HYDROCHLORIDE
     Dosage: 2 MG, QD
     Route: 048
     Dates: start: 20060904, end: 20060905
  15. AKINETON [Concomitant]
     Active Substance: BIPERIDEN HYDROCHLORIDE
     Route: 048
     Dates: start: 20060906
  16. DEPAKENE [Concomitant]
     Active Substance: VALPROIC ACID
     Route: 048
     Dates: start: 200608, end: 20060903
  17. NOVOLIN R [Concomitant]
     Active Substance: INSULIN HUMAN
     Dosage: 4 IU, QD
     Route: 058
     Dates: start: 2003, end: 20060905
  18. SERENACE [Concomitant]
     Active Substance: HALOPERIDOL
     Route: 048
     Dates: start: 200603, end: 20060903
  19. AKINETON [Concomitant]
     Active Substance: BIPERIDEN HYDROCHLORIDE
     Route: 048
     Dates: start: 200603, end: 20060903
  20. ROHYPNOL [Concomitant]
     Active Substance: FLUNITRAZEPAM
     Route: 048
     Dates: start: 200603, end: 20060903
  21. ROHYPNOL [Concomitant]
     Active Substance: FLUNITRAZEPAM
     Dosage: 1 MG, QD
     Route: 048
     Dates: start: 20060904, end: 20060905
  22. ABILIFY [Suspect]
     Active Substance: ARIPIPRAZOLE
     Dosage: 3 MG, BID
     Route: 048
     Dates: start: 20060904, end: 20060905
  23. SERENACE [Concomitant]
     Active Substance: HALOPERIDOL
     Route: 048
     Dates: start: 20060906
  24. ROHYPNOL [Concomitant]
     Active Substance: FLUNITRAZEPAM
     Route: 048
     Dates: start: 20060906
  25. VALPROATE SODIUM. [Concomitant]
     Active Substance: VALPROATE SODIUM
     Indication: AFFECTIVE DISORDER
     Dosage: 600 MG, UNK
     Route: 048
     Dates: start: 200608

REACTIONS (1)
  - Blood glucose increased [Recovered/Resolved]

NARRATIVE: CASE EVENT DATE: 20060905
